FAERS Safety Report 9042134 (Version 1)
Quarter: 2013Q1

REPORT INFORMATION
  Report Type: Report from Study
  Country: US (occurrence: US)
  Receive Date: 20130129
  Receipt Date: 20130129
  Transmission Date: 20140127
  Serious: No
  Sender: FDA-Public Use
  Company Number: US-ABBOTT-12P-163-0906531-00

PATIENT
  Sex: Female
  Weight: 113.5 kg

DRUGS (6)
  1. HUMIRA 40 MG/0.8 ML PEN [Suspect]
     Indication: RHEUMATOID ARTHRITIS
     Route: 058
     Dates: start: 20111201
  2. METHOTREXATE [Concomitant]
     Indication: RHEUMATOID ARTHRITIS
  3. LEVOXYL [Concomitant]
     Indication: HYPOTHYROIDISM
  4. FOLIC ACID [Concomitant]
     Indication: VITAMIN SUPPLEMENTATION
  5. BENAZEPRIL [Concomitant]
     Indication: BLOOD PRESSURE
  6. FISH OIL [Concomitant]
     Indication: BLOOD CHOLESTEROL

REACTIONS (2)
  - Injection site erythema [Not Recovered/Not Resolved]
  - Drug administered at inappropriate site [Not Recovered/Not Resolved]
